FAERS Safety Report 8674637 (Version 2)
Quarter: 2012Q4

REPORT INFORMATION
  Report Type: Report from Study
  Country: US (occurrence: US)
  Receive Date: 20120720
  Receipt Date: 20121030
  Transmission Date: 20130627
  Serious: Yes (Other)
  Sender: FDA-Public Use
  Company Number: US-US-EMD SERONO, INC.-7147371

PATIENT
  Sex: Female

DRUGS (3)
  1. REBIF [Suspect]
     Indication: MULTIPLE SCLEROSIS
     Route: 058
     Dates: end: 201203
  2. REBIF [Suspect]
     Route: 058
     Dates: start: 20120612, end: 201208
  3. REBIF [Suspect]
     Route: 058
     Dates: start: 201210

REACTIONS (6)
  - Gallbladder operation [Unknown]
  - Menorrhagia [Recovered/Resolved]
  - Neuralgia [Not Recovered/Not Resolved]
  - Malaise [Unknown]
  - Injection site pain [Not Recovered/Not Resolved]
  - Injection site bruising [Not Recovered/Not Resolved]
